FAERS Safety Report 5713827-0 (Version None)
Quarter: 2008Q2

REPORT INFORMATION
  Report Type: 
  Country: None (occurrence: None)
  Receive Date: 20080421
  Receipt Date: 20080410
  Transmission Date: 20081010
  Serious: Yes (Death)
  Sender: FDA-Public Use
  Company Number: 2008SP000159

PATIENT
  Age: 82 Year
  Sex: Female

DRUGS (8)
  1. BROVANA [Suspect]
     Dosage: INHALATION
     Route: 055
  2. XOPENEX [Suspect]
     Dosage: Q4H, INHALATION
     Route: 055
  3. CORTICOSTEROIDS [Concomitant]
  4. KENALOG [Concomitant]
  5. PREDNISONE [Concomitant]
  6. OXYGEN [Concomitant]
  7. SPIRIVA [Concomitant]
  8. ADVAIR HFA [Concomitant]

REACTIONS (4)
  - INSOMNIA [None]
  - REFUSAL OF TREATMENT BY PATIENT [None]
  - TREATMENT NONCOMPLIANCE [None]
  - WHEEZING [None]
